FAERS Safety Report 9199949 (Version 2)
Quarter: 2013Q2

REPORT INFORMATION
  Report Type: Spontaneous
  Country: JP (occurrence: JP)
  Receive Date: 20130329
  Receipt Date: 20130412
  Transmission Date: 20140414
  Serious: No
  Sender: FDA-Public Use
  Company Number: JP-B.I. PHARMACEUTICALS,INC./RIDGEFIELD-2013-BI-05293NB

PATIENT
  Age: 77 Year
  Sex: Male
  Weight: 50.3 kg

DRUGS (7)
  1. TRAZENTA [Suspect]
     Indication: DIABETES MELLITUS
     Dosage: 5 MG
     Route: 048
     Dates: start: 20130123, end: 20130126
  2. ARICEPT D [Concomitant]
     Indication: DEMENTIA
     Route: 048
  3. URIEF [Concomitant]
     Indication: BENIGN PROSTATIC HYPERPLASIA
     Dosage: 8 MG
     Route: 048
  4. AVOLVE [Concomitant]
     Indication: BENIGN PROSTATIC HYPERPLASIA
     Dosage: 0.5 MG
     Route: 048
  5. REPTOR [Concomitant]
     Route: 065
  6. PROTECADIN [Concomitant]
     Indication: GASTRITIS
     Dosage: 20 MG
     Route: 048
  7. URSO [Concomitant]
     Indication: LIVER DISORDER
     Dosage: 600 MG
     Route: 048

REACTIONS (1)
  - Drug eruption [Recovered/Resolved]
